FAERS Safety Report 7628853-4 (Version None)
Quarter: 2011Q3

REPORT INFORMATION
  Report Type: 
  Country: None (occurrence: None)
  Receive Date: 20110722
  Receipt Date: 20110719
  Transmission Date: 20111222
  Serious: Yes (Other)
  Sender: FDA-Public Use
  Company Number: DE-BRISTOL-MYERS SQUIBB COMPANY-15873730

PATIENT
  Age: 75 Year
  Sex: Female
  Weight: 94 kg

DRUGS (3)
  1. ORENCIA [Suspect]
     Indication: RHEUMATOID ARTHRITIS
     Dosage: NO OF INF:6
     Route: 042
     Dates: start: 20100929
  2. IBUPROFEN [Suspect]
     Indication: RHEUMATOID ARTHRITIS
  3. METHOTREXATE [Suspect]
     Indication: RHEUMATOID ARTHRITIS

REACTIONS (3)
  - MYOCARDIAL INFARCTION [None]
  - EXTRASYSTOLES [None]
  - ATRIAL FIBRILLATION [None]
